FAERS Safety Report 8883219 (Version 1)
Quarter: 2012Q4

REPORT INFORMATION
  Report Type: 
  Country: TR (occurrence: TR)
  Receive Date: 20121102
  Receipt Date: 20121102
  Transmission Date: 20130627
  Serious: Yes (Life-Threatening, Other)
  Sender: FDA-Public Use
  Company Number: TR-CUBIST-2012S1000774

PATIENT
  Age: 56 Year
  Sex: Male
  Weight: 71 kg

DRUGS (3)
  1. CUBICIN [Suspect]
     Indication: PRODUCT USED FOR UNKNOWN INDICATION
     Route: 042
     Dates: start: 20120815
  2. TAZOCIN [Concomitant]
     Indication: PRODUCT USED FOR UNKNOWN INDICATION
     Route: 065
  3. ANTIBIOTICS [Concomitant]
     Indication: PRODUCT USED FOR UNKNOWN INDICATION
     Route: 065

REACTIONS (5)
  - Febrile neutropenia [Recovered/Resolved]
  - Rhabdomyolysis [Recovered/Resolved]
  - Renal failure acute [Recovered/Resolved]
  - Dysphagia [Unknown]
  - Headache [Unknown]
